FAERS Safety Report 5277612-9 (Version None)
Quarter: 2007Q1

REPORT INFORMATION
  Report Type: 
  Country: None (occurrence: None)
  Receive Date: 20070327
  Receipt Date: 20070312
  Transmission Date: 20070707
  Serious: Yes (Other)
  Sender: FDA-Public Use
  Company Number: US-SANOFI-SYNTHELABO-A03200702215

PATIENT
  Sex: Male

DRUGS (5)
  1. PERCOCET [Concomitant]
     Dosage: UNK
     Route: 065
  2. OXYCONTIN [Concomitant]
     Dosage: UNK
     Route: 065
  3. LORAZEPAM [Concomitant]
     Dosage: UNK
     Route: 065
  4. AMBIEN [Suspect]
     Indication: INSOMNIA
     Route: 048
     Dates: start: 20021201, end: 20050112
  5. TEMAZEPAM [Concomitant]
     Dosage: UNK
     Route: 065

REACTIONS (4)
  - AMNESIA [None]
  - EATING DISORDER [None]
  - SLEEP TALKING [None]
  - SLEEP WALKING [None]
